FAERS Safety Report 4428644-1 (Version None)
Quarter: 2004Q3

REPORT INFORMATION
  Report Type: 
  Country: None (occurrence: None)
  Receive Date: 20040818
  Receipt Date: 20030804
  Transmission Date: 20050211
  Serious: No
  Sender: FDA-Public Use
  Company Number: US-BRISTOL-MYERS SQUIBB COMPANY-12346730

PATIENT
  Sex: Female

DRUGS (3)
  1. TEQUIN [Suspect]
     Dosage: 1ST COURSE 3-JUL TO 11-JUL, THEN RESTARTED 30-JUL-2003
     Route: 048
     Dates: start: 20030703
  2. EXTRA STRENGTH TYLENOL [Concomitant]
  3. MAVIK [Concomitant]

REACTIONS (1)
  - DYSGEUSIA [None]
